FAERS Safety Report 8213388-0 (Version None)
Quarter: 2012Q1

REPORT INFORMATION
  Report Type: 
  Country: None (occurrence: None)
  Receive Date: 20120315
  Receipt Date: 20120314
  Transmission Date: 20120608
  Serious: Yes (Hospitalization)
  Sender: FDA-Public Use
  Company Number: US-ROCHE-1045136

PATIENT
  Sex: Female

DRUGS (9)
  1. PEGINTERFERON ALFA-2A [Suspect]
     Indication: HEPATITIS C
     Dates: start: 20111019
  2. METFORMIN HCL [Concomitant]
  3. IBUPROFEN [Concomitant]
  4. SERTRALINE HYDROCHLORIDE [Concomitant]
  5. COPEGUS [Suspect]
     Indication: HEPATITIS C
     Dosage: IN DIVIDED DOSE
     Dates: start: 20111019
  6. PHENERGAN [Concomitant]
  7. HYDROCHLOROTHIAZIDE [Concomitant]
  8. GABAPENTIN [Concomitant]
  9. BENAZEPRIL HYDROCHLORIDE [Concomitant]

REACTIONS (4)
  - GASTROINTESTINAL DISORDER [None]
  - VOMITING [None]
  - PLATELET COUNT DECREASED [None]
  - BLOOD GLUCOSE DECREASED [None]
